FAERS Safety Report 7275633-8 (Version None)
Quarter: 2011Q1

REPORT INFORMATION
  Report Type: 
  Country: None (occurrence: None)
  Receive Date: 20110131
  Receipt Date: 20110118
  Transmission Date: 20110831
  Serious: Yes (Hospitalization, Disabling)
  Sender: FDA-Public Use
  Company Number: 809746

PATIENT
  Age: 72 Year
  Sex: Male
  Weight: 94 kg

DRUGS (18)
  1. (ADCAL-D3) [Concomitant]
  2. (BENDROFLUMETHIAZIDE) [Concomitant]
  3. NEUPOGEN [Concomitant]
  4. CYTARABINE [Suspect]
     Indication: ACUTE MYELOID LEUKAEMIA
     Dosage: 4000 MG MILLIGRAM(S), INTRAVENOUS (NOT OTHERWISE SPECIFIE)
     Route: 042
     Dates: start: 20100930, end: 20101004
  5. (DOXAZOSIN) [Concomitant]
  6. (ANTIBIOTICS) [Concomitant]
  7. (METFORMIN) [Concomitant]
  8. (TAZOCIN) [Concomitant]
  9. (TEICOPLANIN) [Concomitant]
  10. (ZOPICLONE) [Concomitant]
  11. LANSOPRAZOLE [Concomitant]
  12. FLUDARA [Concomitant]
  13. ITRACONAZOLE [Concomitant]
  14. (MEROPONEM) [Concomitant]
  15. (SANDO-K /00031402/) [Concomitant]
  16. (ACICLOVIR) [Concomitant]
  17. (ALENDRONATE) [Concomitant]
  18. (PARACETAMOL) [Concomitant]

REACTIONS (12)
  - OEDEMA PERIPHERAL [None]
  - SPINAL FRACTURE [None]
  - BALANCE DISORDER [None]
  - PARALYSIS [None]
  - RASH [None]
  - SENSORY LOSS [None]
  - HEARING IMPAIRED [None]
  - HYPOAESTHESIA [None]
  - GUILLAIN-BARRE SYNDROME [None]
  - FALL [None]
  - DEVICE RELATED INFECTION [None]
  - VISUAL IMPAIRMENT [None]
